FAERS Safety Report 18710242 (Version 1)
Quarter: 2021Q1

REPORT INFORMATION
  Report Type: Spontaneous
  Country: US (occurrence: US)
  Receive Date: 20210107
  Receipt Date: 20210107
  Transmission Date: 20210419
  Serious: Yes (Other)
  Sender: FDA-Public Use
  Company Number: US-RECKITT BENCKISER HEALTHCARE INT LIMITED-RB-80498-2021

PATIENT
  Sex: Male

DRUGS (1)
  1. MUCINEX [Suspect]
     Active Substance: GUAIFENESIN
     Indication: DRUG ABUSE
     Dosage: 20 DOSAGE FORM, QD FOR 20 YEARS
     Route: 065

REACTIONS (3)
  - Drug abuse [Unknown]
  - Incorrect product administration duration [Unknown]
  - Intentional overdose [Unknown]
